FAERS Safety Report 16857387 (Version 1)
Quarter: 2019Q3

REPORT INFORMATION
  Report Type: Spontaneous
  Country: IT (occurrence: IT)
  Receive Date: 20190926
  Receipt Date: 20190926
  Transmission Date: 20191005
  Serious: Yes (Life-Threatening)
  Sender: FDA-Public Use
  Company Number: IT-PFIZER INC-2019413850

PATIENT
  Age: 40 Year
  Sex: Female
  Weight: 50 kg

DRUGS (2)
  1. DOCETAXEL. [Suspect]
     Active Substance: DOCETAXEL
     Indication: LOBULAR BREAST CARCINOMA IN SITU
     Dosage: 110 MG, CYCLIC
     Route: 042
     Dates: start: 20190816, end: 20190816
  2. CYCLOPHOSPHAMIDE. [Concomitant]
     Active Substance: CYCLOPHOSPHAMIDE
     Indication: LOBULAR BREAST CARCINOMA IN SITU
     Dosage: 900 MG, CYCLIC
     Route: 042
     Dates: start: 20190816, end: 20190816

REACTIONS (3)
  - Septic shock [Not Recovered/Not Resolved]
  - Colitis [Not Recovered/Not Resolved]
  - Leukopenia [Not Recovered/Not Resolved]

NARRATIVE: CASE EVENT DATE: 20190825
